FAERS Safety Report 15432320 (Version 2)
Quarter: 2018Q4

REPORT INFORMATION
  Report Type: Report from Study
  Country: US (occurrence: US)
  Receive Date: 20180926
  Receipt Date: 20181008
  Transmission Date: 20190204
  Serious: Yes (Hospitalization)
  Sender: FDA-Public Use
  Company Number: US-ASTRAZENECA-2018SF24062

PATIENT
  Age: 62 Year
  Sex: Female

DRUGS (18)
  1. AZD9150 [Suspect]
     Active Substance: DANVATIRSEN
     Indication: DIFFUSE LARGE B-CELL LYMPHOMA REFRACTORY
     Dosage: 170 MG
     Route: 042
     Dates: start: 20180905, end: 20180905
  2. MEDI4736 [Suspect]
     Active Substance: DURVALUMAB
     Indication: DIFFUSE LARGE B-CELL LYMPHOMA REFRACTORY
     Dosage: 1675 MG
     Route: 042
     Dates: start: 20180905, end: 20180905
  3. LACTOBACILLUS ACIDOPHILUS [Concomitant]
     Active Substance: LACTOBACILLUS ACIDOPHILUS
     Indication: NUTRITIONAL SUPPLEMENTATION
     Dosage: 1 TWICE DAILY
     Route: 048
     Dates: start: 20180215
  4. FLAXSEED [Concomitant]
     Active Substance: FLAX SEED
     Indication: NUTRITIONAL SUPPLEMENTATION
     Dosage: 1 DAILY
     Route: 048
     Dates: start: 20180628
  5. AZD9150 [Suspect]
     Active Substance: DANVATIRSEN
     Indication: DIFFUSE LARGE B-CELL LYMPHOMA REFRACTORY
     Dosage: 170 MG
     Route: 042
     Dates: start: 20180829, end: 20180829
  6. MULTIVITAMIN WITH MINERALS [Concomitant]
     Active Substance: MINERALS\VITAMINS
     Indication: NUTRITIONAL SUPPLEMENTATION
     Dosage: 1 DAILY
     Route: 048
     Dates: start: 20180329
  7. GABAPENTIN. [Concomitant]
     Active Substance: GABAPENTIN
     Indication: PERIPHERAL SENSORY NEUROPATHY
     Route: 048
     Dates: start: 20180804
  8. APIXABAN [Concomitant]
     Active Substance: APIXABAN
     Indication: PROPHYLAXIS
     Route: 048
     Dates: start: 20180804
  9. ACETAMINOPHEN. [Concomitant]
     Active Substance: ACETAMINOPHEN
     Indication: BACK PAIN
     Route: 048
     Dates: start: 20180802
  10. AZD9150 [Suspect]
     Active Substance: DANVATIRSEN
     Indication: DIFFUSE LARGE B-CELL LYMPHOMA REFRACTORY
     Dosage: 170 MG
     Route: 042
     Dates: start: 20180831, end: 20180831
  11. AZD9150 [Suspect]
     Active Substance: DANVATIRSEN
     Indication: DIFFUSE LARGE B-CELL LYMPHOMA REFRACTORY
     Dosage: 170 MG
     Route: 042
     Dates: start: 20180910, end: 20180910
  12. ONDANSETRON [Concomitant]
     Active Substance: ONDANSETRON
     Indication: PROPHYLAXIS OF NAUSEA AND VOMITING
     Dosage: 8.0MG AS REQUIRED
     Route: 048
     Dates: start: 20180804
  13. INULIN [Concomitant]
     Active Substance: INULIN
     Indication: CONSTIPATION PROPHYLAXIS
     Dosage: 1 DAILY
     Route: 048
     Dates: start: 20180516
  14. TRAMADOL. [Concomitant]
     Active Substance: TRAMADOL
     Indication: BACK PAIN
     Dosage: 50 MG
     Route: 048
     Dates: start: 20180814
  15. FUROSEMIDE. [Concomitant]
     Active Substance: FUROSEMIDE
     Indication: LOCALISED OEDEMA
     Route: 048
     Dates: start: 20180917
  16. SULFAMETHOXAZOLE-TRIMETHOPRIM [Concomitant]
     Active Substance: SULFAMETHOXAZOLE\TRIMETHOPRIM
     Indication: PROPHYLAXIS
     Dosage: 1
     Route: 048
     Dates: start: 20180518
  17. AZD9150 [Suspect]
     Active Substance: DANVATIRSEN
     Indication: DIFFUSE LARGE B-CELL LYMPHOMA REFRACTORY
     Dosage: 170 MG
     Route: 042
     Dates: start: 20180827, end: 20180827
  18. B-COMPLEX VITAMINS [Concomitant]
     Indication: NUTRITIONAL SUPPLEMENTATION
     Dosage: 1 DAILY
     Route: 048
     Dates: start: 20180215

REACTIONS (1)
  - Peripheral motor neuropathy [Recovered/Resolved]

NARRATIVE: CASE EVENT DATE: 20180924
